FAERS Safety Report 10616353 (Version 3)
Quarter: 2015Q3

REPORT INFORMATION
  Report Type: Spontaneous
  Country: FR (occurrence: FR)
  Receive Date: 20141201
  Receipt Date: 20150803
  Transmission Date: 20151125
  Serious: Yes (Hospitalization, Other)
  Sender: FDA-Public Use
  Company Number: FR-ELI_LILLY_AND_COMPANY-FR201411006494

PATIENT
  Age: 29 Year
  Sex: Male
  Weight: 88 kg

DRUGS (2)
  1. ZYPREXA [Suspect]
     Active Substance: OLANZAPINE
     Indication: PSYCHOTIC DISORDER
     Dosage: 30 MG, QD
     Route: 048
     Dates: start: 20141011, end: 20141014
  2. ZYPREXA [Suspect]
     Active Substance: OLANZAPINE
     Dosage: 20 MG, QD
     Route: 048
     Dates: start: 20141015, end: 20141030

REACTIONS (6)
  - Overdose [Unknown]
  - C-reactive protein increased [Recovered/Resolved]
  - Hepatitis [Recovering/Resolving]
  - Creatinine renal clearance increased [Unknown]
  - Vitamin D decreased [Unknown]
  - Weight increased [Unknown]

NARRATIVE: CASE EVENT DATE: 20141031
